FAERS Safety Report 8069388-7 (Version None)
Quarter: 2012Q1

REPORT INFORMATION
  Report Type: 
  Country: None (occurrence: None)
  Receive Date: 20120125
  Receipt Date: 20120120
  Transmission Date: 20120608
  Serious: Yes (Other)
  Sender: FDA-Public Use
  Company Number: US-BAYER-2012-007146

PATIENT
  Age: 18 Year
  Sex: Female

DRUGS (2)
  1. ASPIRIN [Suspect]
     Dosage: 2 DF, Q4HR
     Route: 048
     Dates: start: 20120119
  2. AMOXICILLIN [Concomitant]
     Dosage: UNK
     Dates: start: 20120119

REACTIONS (1)
  - TINNITUS [None]
